FAERS Safety Report 6675568-5 (Version None)
Quarter: 2010Q2

REPORT INFORMATION
  Report Type: 
  Country: None (occurrence: None)
  Receive Date: 20100409
  Receipt Date: 20100329
  Transmission Date: 20101027
  Serious: Yes (Other)
  Sender: FDA-Public Use
  Company Number: PHEH2006US08864

PATIENT
  Sex: Male

DRUGS (7)
  1. ZOMETA [Suspect]
     Dosage: UNK
     Dates: start: 20030101
  2. VINCRISTINE [Concomitant]
     Dosage: UNK
     Dates: start: 20030101
  3. ADRIAMYCIN PFS [Concomitant]
     Dosage: UNK
     Dates: start: 20030101
  4. DEXAMETHASONE ^KRKA^ [Concomitant]
     Dosage: UNK
     Dates: start: 20030101
  5. CARDIZEM [Concomitant]
     Dosage: UNK
  6. COUMADIN [Concomitant]
  7. THALIDOMIDE [Concomitant]
     Dosage: UNK

REACTIONS (12)
  - ACTINOMYCOSIS [None]
  - ANXIETY [None]
  - ATRIAL FIBRILLATION [None]
  - BONE OPERATION [None]
  - DEBRIDEMENT [None]
  - DENTAL FISTULA [None]
  - INJURY [None]
  - OSTEOMYELITIS [None]
  - OSTEONECROSIS [None]
  - PAIN [None]
  - TOOTH EXTRACTION [None]
  - TOOTH IMPACTED [None]
